FAERS Safety Report 15539176 (Version 3)
Quarter: 2019Q2

REPORT INFORMATION
  Report Type: Report from Study
  Country: US (occurrence: US)
  Receive Date: 20181022
  Receipt Date: 20190415
  Transmission Date: 20190711
  Serious: Yes (Hospitalization, Other)
  Sender: FDA-Public Use
  Company Number: US-ACTELION-A-NJ2017-161361

PATIENT
  Age: 48 Year
  Sex: Female

DRUGS (27)
  1. PRAVASTATIN. [Concomitant]
     Active Substance: PRAVASTATIN
     Dosage: 10 MG, QD
     Dates: start: 20171016
  2. BENADRYL [Concomitant]
     Active Substance: DIPHENHYDRAMINE HYDROCHLORIDE
     Dosage: 50 MG/ML, .5ML PRN
  3. OPSUMIT [Suspect]
     Active Substance: MACITENTAN
     Indication: PULMONARY HYPERTENSION
     Dosage: 10 MG, QD
     Route: 048
     Dates: start: 20171005
  4. PROAIR HFA [Concomitant]
     Active Substance: ALBUTEROL SULFATE
     Dosage: UNK, BID PRN
  5. QVAR [Concomitant]
     Active Substance: BECLOMETHASONE DIPROPIONATE
     Dosage: 2 PUFF, BID
     Route: 055
     Dates: start: 20171003
  6. DILAUDID [Concomitant]
     Active Substance: HYDROMORPHONE HYDROCHLORIDE
     Dosage: 4 MG, PRN
  7. HYDROXYZINE [Concomitant]
     Active Substance: HYDROXYZINE HYDROCHLORIDE
     Dosage: 10 MG, PRN
  8. SORIATANE [Concomitant]
     Active Substance: ACITRETIN
     Dosage: 10 MG, BID
  9. AMBIEN CR [Concomitant]
     Active Substance: ZOLPIDEM TARTRATE
     Dosage: 6.25 MG, PRN
  10. IMITREX [Concomitant]
     Active Substance: SUMATRIPTAN SUCCINATE
     Dosage: 100 MG, EVERY 2 HOURS PRN
  11. DILTIAZEM. [Concomitant]
     Active Substance: DILTIAZEM
  12. AMITIZA [Concomitant]
     Active Substance: LUBIPROSTONE
     Dosage: 4 MCG, TID
  13. DOXYCYCLINE. [Concomitant]
     Active Substance: DOXYCYCLINE
     Dosage: 100 MG, QD
     Route: 048
  14. MECLIZINE [Concomitant]
     Active Substance: MECLIZINE HYDROCHLORIDE
     Dosage: 25 MG, Q6HRS PRN
  15. NIFEDIPINE. [Concomitant]
     Active Substance: NIFEDIPINE
     Dosage: 30 MG, QD ER
  16. ELIQUIS [Concomitant]
     Active Substance: APIXABAN
     Dosage: 5 MG, BID
     Dates: start: 2013
  17. AMITIZA [Concomitant]
     Active Substance: LUBIPROSTONE
     Dosage: 24 MCG, BID
  18. VALIUM [Concomitant]
     Active Substance: DIAZEPAM
     Dosage: 5 MG, QD NPR
  19. ASPIRIN (E.C.) [Concomitant]
     Active Substance: ASPIRIN
     Dosage: 325 MG, QD
     Dates: start: 20170927
  20. DEXILANT [Concomitant]
     Active Substance: DEXLANSOPRAZOLE
     Dosage: 60 MG, QD
  21. WELLBUTRIN [Concomitant]
     Active Substance: BUPROPION HYDROCHLORIDE
     Dosage: 300 MG, QD
  22. VESICARE [Concomitant]
     Active Substance: SOLIFENACIN SUCCINATE
     Dosage: 10 MG, QD
  23. AMBIEN CR [Concomitant]
     Active Substance: ZOLPIDEM TARTRATE
     Dosage: .25 MG, QD
  24. CARDIZEM [Concomitant]
     Active Substance: DILTIAZEM HYDROCHLORIDE
     Dosage: 50 MG, QD
     Dates: start: 20171004
  25. QVAR [Concomitant]
     Active Substance: BECLOMETHASONE DIPROPIONATE
     Dosage: 40 MCG, UNK
  26. ZOLOFT [Concomitant]
     Active Substance: SERTRALINE HYDROCHLORIDE
     Dosage: 25 MG, QD
  27. GOLYTELY [Concomitant]
     Active Substance: POLYETHYLENE GLYCOL 3350\POTASSIUM CHLORIDE\SODIUM BICARBONATE\SODIUM CHLORIDE\SODIUM SULFATE ANHYDROUS
     Dosage: UNK, PRN

REACTIONS (15)
  - Chest pain [Unknown]
  - Lethargy [Not Recovered/Not Resolved]
  - Cough [Recovered/Resolved]
  - Dizziness postural [Unknown]
  - Fatigue [Recovered/Resolved]
  - Nasopharyngitis [Unknown]
  - Bone graft [Unknown]
  - Pericardial excision [Unknown]
  - Headache [Recovered/Resolved]
  - Postoperative thoracic procedure complication [Unknown]
  - Oropharyngeal pain [Recovered/Resolved]
  - Pericarditis constrictive [Unknown]
  - Dyspnoea [Unknown]
  - Oxygen saturation decreased [Recovered/Resolved]
  - Influenza [Unknown]

NARRATIVE: CASE EVENT DATE: 201710
